FAERS Safety Report 6257996-5 (Version None)
Quarter: 2009Q3

REPORT INFORMATION
  Report Type: 
  Country: None (occurrence: None)
  Receive Date: 20090707
  Receipt Date: 20090703
  Transmission Date: 20100115
  Serious: Yes (Death)
  Sender: FDA-Public Use
  Company Number: JP-B.I. PHARMACEUTICALS,INC./RIDGEFIELD-2009-BP-06729NB

PATIENT
  Age: 63 Year
  Sex: Female
  Weight: 64.7 kg

DRUGS (5)
  1. BI-SIFROL TABLETS [Suspect]
     Indication: PARKINSON'S DISEASE
     Dosage: 0.75 NR
     Route: 048
     Dates: start: 20071217, end: 20080101
  2. MADOPAR [Concomitant]
     Indication: PARKINSON'S DISEASE
     Dosage: 200 MG
     Route: 048
     Dates: start: 20040930, end: 20080101
  3. DOPS [Concomitant]
     Indication: PARKINSON'S DISEASE
     Dosage: 600 MG
     Route: 048
     Dates: start: 20050726, end: 20080101
  4. WYPAX [Concomitant]
     Indication: ANXIETY
     Dosage: 1.5 MG
     Route: 048
     Dates: start: 20050714, end: 20080101
  5. ALINAMIN-F [Concomitant]
     Indication: NUTRITIONAL SUPPORT
     Dosage: 50 MG
     Route: 048
     Dates: start: 20071211, end: 20080101

REACTIONS (2)
  - ABDOMINAL SYMPTOM [None]
  - DEATH [None]
